FAERS Safety Report 23521011 (Version 2)
Quarter: 2025Q2

REPORT INFORMATION
  Report Type: Spontaneous
  Country: FR (occurrence: FR)
  Receive Date: 20240214
  Receipt Date: 20250503
  Transmission Date: 20250717
  Serious: Yes (Other)
  Sender: AUROBINDO
  Company Number: FR-PFIZER INC-2020476170

PATIENT
  Age: 59 Year
  Sex: Female
  Weight: 70 kg

DRUGS (9)
  1. CARBOPLATIN [Suspect]
     Active Substance: CARBOPLATIN
     Indication: Product used for unknown indication
     Route: 065
  2. GEMZAR [Suspect]
     Active Substance: GEMCITABINE HYDROCHLORIDE
     Indication: Product used for unknown indication
     Route: 065
  3. TALAZOPARIB [Suspect]
     Active Substance: TALAZOPARIB
     Indication: HER2 negative breast cancer
     Dosage: 1 MILLIGRAM, ONCE A DAY
     Route: 048
     Dates: start: 20190702, end: 20200402
  4. ACETAMINOPHEN [Concomitant]
     Active Substance: ACETAMINOPHEN
     Indication: Product used for unknown indication
     Route: 065
     Dates: start: 20200406, end: 20200502
  5. NICOTINE [Concomitant]
     Active Substance: NICOTINE
     Indication: Product used for unknown indication
     Route: 065
     Dates: start: 20200406, end: 20200502
  6. PHLOROGLUCINOL [Concomitant]
     Active Substance: PHLOROGLUCINOL
     Indication: Product used for unknown indication
     Route: 065
     Dates: start: 20200408, end: 20200427
  7. PANTOPRAZOLE SODIUM [Concomitant]
     Active Substance: PANTOPRAZOLE SODIUM
     Indication: Product used for unknown indication
     Route: 065
     Dates: start: 20200408, end: 20200503
  8. PHYTONADIONE [Concomitant]
     Active Substance: PHYTONADIONE
     Indication: Product used for unknown indication
     Route: 065
     Dates: start: 20200408, end: 20200504
  9. MORPHINE SULFATE [Concomitant]
     Active Substance: MORPHINE SULFATE
     Indication: Product used for unknown indication
     Route: 065
     Dates: start: 20200410, end: 20200504

REACTIONS (2)
  - Febrile bone marrow aplasia [Not Recovered/Not Resolved]
  - Platelet count decreased [Not Recovered/Not Resolved]

NARRATIVE: CASE EVENT DATE: 20200407
